FAERS Safety Report 6541062-5 (Version None)
Quarter: 2010Q1

REPORT INFORMATION
  Report Type: 
  Country: None (occurrence: None)
  Receive Date: 20100118
  Receipt Date: 20100108
  Transmission Date: 20100710
  Serious: Yes (Other)
  Sender: FDA-Public Use
  Company Number: GXKR2007GB09518

PATIENT
  Age: 37 Year
  Sex: Female

DRUGS (9)
  1. TRAMADOL (NGX) [Suspect]
     Indication: BACK PAIN
     Dosage: 200 MG, BID
     Route: 048
     Dates: start: 20070914, end: 20070926
  2. AMITRIPTYLINE [Suspect]
     Dosage: 2 DF, QD (AT NIGHT)
     Route: 048
  3. AMITRIPTYLINE [Suspect]
     Dosage: 3 DF, QD (AT NIGHT)
     Route: 048
  4. OXYCONTIN [Suspect]
     Indication: BACK PAIN
     Dosage: 40 MG, BID
     Route: 048
     Dates: start: 20060301
  5. OXYCONTIN [Suspect]
     Dosage: 10 MG, BID
     Route: 048
  6. OXYCONTIN [Suspect]
     Dosage: 5 MG, TID
     Route: 048
     Dates: end: 20070901
  7. DIAZEPAM [Concomitant]
     Route: 065
  8. GABAPENTIN [Concomitant]
     Route: 065
  9. MELOXICAM [Concomitant]
     Route: 065

REACTIONS (6)
  - AFFECT LABILITY [None]
  - AGITATION [None]
  - ANXIETY [None]
  - DRUG WITHDRAWAL SYNDROME [None]
  - HYPERHIDROSIS [None]
  - PARANOIA [None]
